FAERS Safety Report 16035735 (Version 4)
Quarter: 2019Q1

REPORT INFORMATION
  Report Type: Spontaneous
  Country: US (occurrence: US)
  Receive Date: 20190305
  Receipt Date: 20190321
  Transmission Date: 20190418
  Serious: Yes (Other)
  Sender: FDA-Public Use
  Company Number: US-PFIZER INC-2019093668

PATIENT
  Age: 72 Year
  Sex: Female
  Weight: 81.63 kg

DRUGS (3)
  1. FLECTOR [Suspect]
     Active Substance: DICLOFENAC EPOLAMINE
     Indication: SPINAL OSTEOARTHRITIS
     Dosage: UNK
  2. FLECTOR [Suspect]
     Active Substance: DICLOFENAC EPOLAMINE
     Indication: NECK PAIN
  3. FLECTOR [Suspect]
     Active Substance: DICLOFENAC EPOLAMINE
     Indication: MUSCULOSKELETAL PAIN

REACTIONS (3)
  - Intentional product misuse [Unknown]
  - Expired product administered [Not Recovered/Not Resolved]
  - Myocardial infarction [Unknown]
